FAERS Safety Report 23120244 (Version 1)
Quarter: 2023Q4

REPORT INFORMATION
  Report Type: Spontaneous
  Country: US (occurrence: US)
  Receive Date: 20231029
  Receipt Date: 20231029
  Transmission Date: 20240109
  Serious: No
  Sender: FDA-Public Use
  Company Number: US-OPELLA-2023OHG009030

PATIENT
  Sex: Female

DRUGS (1)
  1. ICY HOT [Suspect]
     Active Substance: MENTHOL\METHYL SALICYLATE
     Indication: Product used for unknown indication
     Route: 065

REACTIONS (2)
  - Urticaria [Unknown]
  - Expired product administered [Unknown]
